FAERS Safety Report 5226028-X (Version None)
Quarter: 2007Q1

REPORT INFORMATION
  Report Type: 
  Country: None (occurrence: None)
  Receive Date: 20070129
  Receipt Date: 20070116
  Transmission Date: 20070707
  Serious: Yes (Other)
  Sender: FDA-Public Use
  Company Number: 863#3#2007-00002

PATIENT
  Age: 44 Year
  Sex: Female

DRUGS (1)
  1. IDROLAX (MACROGOL) [Suspect]
     Indication: COLONOSCOPY
     Dosage: 10 G
     Route: 048
     Dates: start: 20030601, end: 20030601

REACTIONS (1)
  - DEAFNESS TRANSITORY [None]
